FAERS Safety Report 7802740-0 (Version None)
Quarter: 2011Q4

REPORT INFORMATION
  Report Type: 
  Country: None (occurrence: None)
  Receive Date: 20111005
  Receipt Date: 20110922
  Transmission Date: 20120403
  Serious: Yes (Hospitalization)
  Sender: FDA-Public Use
  Company Number: JP-2011-11321

PATIENT
  Age: 81 Year
  Sex: Male
  Weight: 61 kg

DRUGS (3)
  1. FLIVAS (NAFTOPIDIL) [Concomitant]
  2. PLETAL [Suspect]
     Indication: CEREBRAL INFARCTION
     Dosage: 100 MG MILLIGRAM(S), BID, ORAL
     Route: 048
     Dates: start: 20090918, end: 20110528
  3. CRESTOR [Concomitant]

REACTIONS (1)
  - INTRAVENTRICULAR HAEMORRHAGE [None]
